FAERS Safety Report 5755253-4 (Version None)
Quarter: 2008Q2

REPORT INFORMATION
  Report Type: 
  Country: None (occurrence: None)
  Receive Date: 20080529
  Receipt Date: 20080529
  Transmission Date: 20081010
  Serious: Yes (Life-Threatening)
  Sender: FDA-Public Use
  Company Number: None

PATIENT
  Age: 65 Year
  Sex: Male

DRUGS (1)
  1. DIVALPROEX EXTENDED-RELEASE [Suspect]
     Indication: AFFECTIVE DISORDER
     Dosage: 750 MG (ER) BID PO
     Route: 048
     Dates: start: 20071023, end: 20071107

REACTIONS (1)
  - HYPONATRAEMIA [None]
